FAERS Safety Report 5164885-6 (Version None)
Quarter: 2006Q4

REPORT INFORMATION
  Report Type: 
  Country: None (occurrence: None)
  Receive Date: 20061124
  Receipt Date: 20061109
  Transmission Date: 20070319
  Serious: Yes (Hospitalization)
  Sender: FDA-Public Use
  Company Number: 232460

PATIENT
  Age: 54 Year
  Sex: Female
  Weight: 45.2 kg

DRUGS (6)
  1. HERCEPTIN [Suspect]
     Indication: GASTRIC CANCER
     Dosage: SEE IMAGE
     Route: 042
     Dates: start: 20060809, end: 20061017
  2. CAPECITABINE (CAPECITABINE) [Suspect]
     Indication: GASTRIC CANCER
     Dosage: 2600 MG, ORAL
     Route: 048
     Dates: start: 20060809
  3. CISPLATIN [Suspect]
     Indication: GASTRIC CANCER
     Dosage: 80 MG/M2, INTRAVENOUS
     Route: 042
     Dates: start: 20060809, end: 20061017
  4. HYPERALIMENTATION (HYPERALIMENTATION) [Concomitant]
  5. HUMAN INSULIN (INSULIN HUMAN) [Concomitant]
  6. OMEPRAZOLE [Concomitant]

REACTIONS (6)
  - ASCITES [None]
  - DISEASE PROGRESSION [None]
  - HYPERTENSION [None]
  - NAUSEA [None]
  - REVERSIBLE POSTERIOR LEUKOENCEPHALOPATHY SYNDROME [None]
  - VOMITING [None]
